FAERS Safety Report 4924029-X (Version None)
Quarter: 2006Q1

REPORT INFORMATION
  Report Type: 
  Country: None (occurrence: None)
  Receive Date: 20060221
  Receipt Date: 20060214
  Transmission Date: 20060701
  Serious: Yes (Hospitalization)
  Sender: FDA-Public Use
  Company Number: 200511645BWH

PATIENT
  Age: 72 Year
  Sex: Female
  Weight: 78.4723 kg

DRUGS (9)
  1. AVELOX [Suspect]
     Indication: ARTHROPOD STING
     Dosage: 400 MG, BID; ORAL
     Route: 048
     Dates: start: 20050801
  2. AVELOX [Suspect]
     Indication: ARTHROPOD STING
     Dosage: INTRAVENOUS
     Dates: start: 20050801
  3. COUMADIN [Concomitant]
  4. TOPROL [Concomitant]
  5. METRONIDAZOLE [Concomitant]
  6. LESCOL [Concomitant]
  7. FLAGYL [Concomitant]
  8. MAGNESIUM SULFATE [Concomitant]
  9. ZOCOR [Concomitant]

REACTIONS (13)
  - ANOREXIA [None]
  - ANXIETY [None]
  - ASTHENIA [None]
  - CLOSTRIDIUM COLITIS [None]
  - DEPRESSION [None]
  - DIARRHOEA [None]
  - DIFFICULTY IN WALKING [None]
  - DYSSTASIA [None]
  - ERYTHEMA [None]
  - INSOMNIA [None]
  - PAIN [None]
  - PHARMACEUTICAL PRODUCT COMPLAINT [None]
  - SWELLING [None]
